FAERS Safety Report 9741462 (Version 1)
Quarter: 2013Q4

REPORT INFORMATION
  Report Type: Report from Study
  Country: MX (occurrence: MX)
  Receive Date: 20131209
  Receipt Date: 20131209
  Transmission Date: 20140711
  Serious: Yes (Other)
  Sender: FDA-Public Use
  Company Number: PHHY2013MX143512

PATIENT
  Age: 68 Year
  Sex: Female
  Weight: 82 kg

DRUGS (6)
  1. DIOVAN [Suspect]
     Indication: HYPERTENSION
     Dosage: 0.5 DF (80MG), IN THE MORNING
     Route: 048
  2. ONBREZ [Concomitant]
     Indication: CHRONIC OBSTRUCTIVE PULMONARY DISEASE
     Dosage: 300 MG, 1 CAPSULE IN THE MORNING
  3. SPIRIVA [Concomitant]
     Indication: CHRONIC OBSTRUCTIVE PULMONARY DISEASE
     Dosage: 1 UKN, AT NIGHT
  4. ALDACTONE [Concomitant]
     Indication: BLOOD POTASSIUM
     Dosage: 1 DF, IN THE MORNING
     Route: 048
  5. DILACORAN [Concomitant]
     Indication: ARRHYTHMIA
     Dosage: 120 MG, 1 TABLET IN THE MORNING
     Route: 048
  6. OXYGEN [Concomitant]
     Indication: CHRONIC OBSTRUCTIVE PULMONARY DISEASE
     Dosage: 3 L, AT NIGHT
     Route: 045

REACTIONS (3)
  - Arrhythmia [Recovered/Resolved]
  - Blood pressure increased [Recovered/Resolved]
  - Wrong technique in drug usage process [Recovered/Resolved]
